FAERS Safety Report 16661215 (Version 2)
Quarter: 2019Q4

REPORT INFORMATION
  Report Type: Spontaneous
  Country: US (occurrence: US)
  Receive Date: 20190802
  Receipt Date: 20191021
  Transmission Date: 20200122
  Serious: Yes (Other)
  Sender: FDA-Public Use
  Company Number: US-PFIZER INC-2019330738

PATIENT
  Sex: Female

DRUGS (2)
  1. FLAGYL [Suspect]
     Active Substance: METRONIDAZOLE\METRONIDAZOLE HYDROCHLORIDE
     Dosage: UNK
  2. MYRBETRIQ [Suspect]
     Active Substance: MIRABEGRON
     Indication: VAGINAL INFECTION
     Dosage: 25 MG, 1X/DAY
     Route: 048
     Dates: start: 20190628, end: 20190702

REACTIONS (7)
  - Hyperhidrosis [Unknown]
  - General physical health deterioration [Unknown]
  - Diarrhoea [Recovered/Resolved]
  - Back pain [Not Recovered/Not Resolved]
  - Feeling abnormal [Recovered/Resolved]
  - Blood pressure fluctuation [Unknown]
  - Headache [Unknown]

NARRATIVE: CASE EVENT DATE: 2019
